FAERS Safety Report 9608819 (Version 1)
Quarter: 2013Q4

REPORT INFORMATION
  Report Type: Spontaneous
  Country: US (occurrence: None)
  Receive Date: 20131007
  Receipt Date: 20131007
  Transmission Date: 20140711
  Serious: No
  Sender: FDA-Public Use
  Company Number: None

PATIENT
  Age: 65 Year
  Sex: Male
  Weight: 79.83 kg

DRUGS (2)
  1. METOPROLOL ER [Suspect]
     Indication: ATRIAL FIBRILLATION
     Dosage: 1/2 PILL, BID, ORAL
     Route: 048
     Dates: end: 20130920
  2. METOPROLOL ER [Suspect]
     Indication: SUPRAVENTRICULAR TACHYCARDIA
     Dosage: 1/2 PILL, BID, ORAL
     Route: 048
     Dates: end: 20130920

REACTIONS (5)
  - Therapeutic reaction time decreased [None]
  - Atrial fibrillation [None]
  - Condition aggravated [None]
  - Atrial fibrillation [None]
  - Product substitution issue [None]
